FAERS Safety Report 7753889-2 (Version None)
Quarter: 2011Q3

REPORT INFORMATION
  Report Type: 
  Country: None (occurrence: None)
  Receive Date: 20110913
  Receipt Date: 20110830
  Transmission Date: 20111222
  Serious: Yes (Hospitalization)
  Sender: FDA-Public Use
  Company Number: 2011MA012731

PATIENT
  Age: 50 Year
  Sex: Female

DRUGS (2)
  1. CITALOPRAM HYDROBROMIDE [Suspect]
     Indication: MAJOR DEPRESSION
     Dosage: 20 MG; QD; PO
     Route: 048
  2. GABAPENTIN [Suspect]
     Indication: MORTON'S NEUROMA
     Dosage: 300 MG;QD;PO
     Route: 048

REACTIONS (2)
  - GRAND MAL CONVULSION [None]
  - CONFUSIONAL STATE [None]
